FAERS Safety Report 4657486-7 (Version None)
Quarter: 2005Q2

REPORT INFORMATION
  Report Type: 
  Country: None (occurrence: None)
  Receive Date: 20050506
  Receipt Date: 20050426
  Transmission Date: 20051028
  Serious: Yes (Hospitalization, Other)
  Sender: FDA-Public Use
  Company Number: USA-2005-0019957

PATIENT
  Age: 79 Year
  Sex: Female

DRUGS (2)
  1. PALLADONE [Suspect]
     Indication: PAIN
     Dosage: 24 MG, Q24H, ORAL
     Route: 048
     Dates: start: 20050324, end: 20050101
  2. MORPHINE SULFATE [Concomitant]

REACTIONS (5)
  - BREAST CANCER [None]
  - CONDITION AGGRAVATED [None]
  - DISEASE PROGRESSION [None]
  - DYSKINESIA [None]
  - PETIT MAL EPILEPSY [None]
